FAERS Safety Report 11209499 (Version 2)
Quarter: 2015Q2

REPORT INFORMATION
  Report Type: Spontaneous
  Country: GB (occurrence: GB)
  Receive Date: 20150622
  Receipt Date: 20150626
  Transmission Date: 20150821
  Serious: Yes (Other)
  Sender: FDA-Public Use
  Company Number: PHFR2015GB004689

PATIENT

DRUGS (4)
  1. HYOSCINE HYDROBROMIDE [Concomitant]
     Active Substance: SCOPOLAMINE
     Dosage: MATERNAL DOSE
     Route: 064
  2. CLOZARIL [Suspect]
     Active Substance: CLOZAPINE
     Dosage: MATERNAL DOSE
     Route: 064
  3. SERTRALINE [Suspect]
     Active Substance: SERTRALINE HYDROCHLORIDE
     Route: 064
  4. DIAZEPAM. [Concomitant]
     Active Substance: DIAZEPAM
     Dosage: MATERNAL DOSE
     Route: 064

REACTIONS (1)
  - Premature baby [Unknown]
